FAERS Safety Report 5529545-8 (Version None)
Quarter: 2007Q4

REPORT INFORMATION
  Report Type: 
  Country: None (occurrence: None)
  Receive Date: 20071129
  Receipt Date: 20071119
  Transmission Date: 20080405
  Serious: Yes (Other)
  Sender: FDA-Public Use
  Company Number: US-PFIZER INC-2007046188

PATIENT
  Sex: Female
  Weight: 102.1 kg

DRUGS (7)
  1. BEXTRA [Suspect]
     Indication: ARTHRITIS
  2. LESCOL [Concomitant]
  3. MAXZIDE [Concomitant]
  4. PREVACID [Concomitant]
  5. NORVASC [Concomitant]
  6. FLONASE [Concomitant]
  7. CALCIUM [Concomitant]

REACTIONS (1)
  - STEVENS-JOHNSON SYNDROME [None]
